FAERS Safety Report 8832186 (Version 5)
Quarter: 2014Q4

REPORT INFORMATION
  Report Type: Spontaneous
  Country: US (occurrence: US)
  Receive Date: 20121009
  Receipt Date: 20141203
  Transmission Date: 20150529
  Serious: Yes (Hospitalization, Disabling, Other)
  Sender: FDA-Public Use
  Company Number: US-009507513-1205USA00962

PATIENT
  Sex: Female

DRUGS (3)
  1. FOSAMAX [Suspect]
     Active Substance: ALENDRONATE SODIUM
     Indication: OSTEOPOROSIS
     Dosage: UNK
     Route: 048
     Dates: start: 20051021, end: 20100123
  2. NEXIUM [Concomitant]
     Active Substance: ESOMEPRAZOLE MAGNESIUM
     Dosage: UNK
     Dates: start: 200101
  3. OMEPRAZOLE. [Concomitant]
     Active Substance: OMEPRAZOLE
     Dosage: UNK
     Dates: start: 200101

REACTIONS (25)
  - Cholecystectomy [Unknown]
  - Bone graft [Unknown]
  - Pain in extremity [Unknown]
  - Femur fracture [Not Recovered/Not Resolved]
  - Fracture nonunion [Recovering/Resolving]
  - Vitamin D deficiency [Unknown]
  - Fracture delayed union [Unknown]
  - Fracture nonunion [Not Recovered/Not Resolved]
  - Avulsion fracture [Unknown]
  - Open reduction of fracture [Unknown]
  - Internal fixation of fracture [Unknown]
  - Confusional state [Recovering/Resolving]
  - Device failure [Unknown]
  - Low turnover osteopathy [Not Recovered/Not Resolved]
  - Anaemia [Unknown]
  - Inappropriate schedule of drug administration [Unknown]
  - Intramedullary rod insertion [Unknown]
  - Fracture nonunion [Recovering/Resolving]
  - Chronic kidney disease [Not Recovered/Not Resolved]
  - Hernia repair [Unknown]
  - Device failure [Unknown]
  - Internal fixation of fracture [Unknown]
  - Hypercholesterolaemia [Unknown]
  - Hyperthyroidism [Unknown]
  - Sinus tarsi syndrome [Unknown]

NARRATIVE: CASE EVENT DATE: 20051021
